FAERS Safety Report 10179207 (Version 1)
Quarter: 2014Q2

REPORT INFORMATION
  Report Type: Spontaneous
  Country: US (occurrence: None)
  Receive Date: 20140514
  Receipt Date: 20140514
  Transmission Date: 20141212
  Serious: Yes (Other)
  Sender: FDA-Public Use
  Company Number: SYM-2014-19912

PATIENT
  Age: 34 Year
  Sex: Female

DRUGS (2)
  1. XYREM [Suspect]
     Indication: NARCOLEPSY
     Route: 048
     Dates: start: 201002, end: 2010
  2. WELLBUTRIN [Suspect]
     Indication: PRODUCT USED FOR UNKNOWN INDICATION

REACTIONS (8)
  - Erythema [None]
  - Insomnia [None]
  - Rebound effect [None]
  - Generalised tonic-clonic seizure [None]
  - Osteoporosis [None]
  - Eye irritation [None]
  - Palmar erythema [None]
  - Fatigue [None]
